FAERS Safety Report 8801875 (Version 2)
Quarter: 2012Q4

REPORT INFORMATION
  Report Type: 
  Country: US (occurrence: US)
  Receive Date: 20120921
  Receipt Date: 20121009
  Transmission Date: 20130627
  Serious: Yes (Other)
  Sender: FDA-Public Use
  Company Number: US-PFIZER INC-2012232071

PATIENT
  Sex: Female

DRUGS (1)
  1. LYRICA [Suspect]
     Dosage: UNK

REACTIONS (6)
  - Hypersensitivity [Unknown]
  - Dermatitis bullous [Unknown]
  - Rash erythematous [Unknown]
  - Rash pruritic [Unknown]
  - Rash generalised [Unknown]
  - Headache [Unknown]
